FAERS Safety Report 9361762 (Version 1)
Quarter: 2013Q2

REPORT INFORMATION
  Report Type: Spontaneous
  Country: JP (occurrence: JP)
  Receive Date: 20130621
  Receipt Date: 20130621
  Transmission Date: 20140414
  Serious: Yes (Life-Threatening, Hospitalization)
  Sender: FDA-Public Use
  Company Number: JP-BRISTOL-MYERS SQUIBB COMPANY-18995522

PATIENT
  Age: 87 Year
  Sex: Female
  Weight: 45.2 kg

DRUGS (9)
  1. HYDREA CAPS 500 MG [Suspect]
     Indication: ESSENTIAL THROMBOCYTHAEMIA
     Route: 048
     Dates: start: 201302, end: 20130530
  2. PLAVIX TABS [Suspect]
     Indication: CEREBRAL INFARCTION
     Route: 048
     Dates: end: 20130530
  3. ALENDRONATE SODIUM [Suspect]
     Route: 048
     Dates: end: 20130530
  4. THYRADIN S [Concomitant]
     Dosage: TABS
     Route: 048
  5. ARICEPT [Concomitant]
     Route: 048
  6. FUROSEMIDE [Concomitant]
  7. CILAZAPRIL [Concomitant]
     Dosage: TABS
     Route: 048
  8. ARGAMATE [Concomitant]
     Dosage: JEL
     Route: 048
  9. MAGMITT [Concomitant]
     Dosage: TABS
     Route: 048

REACTIONS (2)
  - Pancytopenia [Recovered/Resolved]
  - Anaemia [Recovering/Resolving]
